FAERS Safety Report 6878131-6 (Version None)
Quarter: 2010Q2

REPORT INFORMATION
  Report Type: 
  Country: None (occurrence: None)
  Receive Date: 20100616
  Receipt Date: 20100308
  Transmission Date: 20101027
  Serious: No
  Sender: FDA-Public Use
  Company Number: DSA_42745_2010

PATIENT
  Sex: Female

DRUGS (5)
  1. XENAZINE [Suspect]
     Indication: DRUG USE FOR UNKNOWN INDICATION
     Dosage: 12.5 MG BID ORAL, 12.5 MG QD ORAL
     Route: 048
     Dates: start: 20100224
  2. COENZYME Q10 [Concomitant]
  3. DAILY MULTIVITAMIN [Concomitant]
  4. LEXAPRO [Concomitant]
  5. DEPAKOTE [Concomitant]

REACTIONS (4)
  - BALANCE DISORDER [None]
  - DIZZINESS [None]
  - FALL [None]
  - MOUTH INJURY [None]
